FAERS Safety Report 5222890-5 (Version None)
Quarter: 2007Q1

REPORT INFORMATION
  Report Type: 
  Country: None (occurrence: None)
  Receive Date: 20070129
  Receipt Date: 20070117
  Transmission Date: 20070707
  Serious: Yes (Other)
  Sender: FDA-Public Use
  Company Number: DE-PFIZER INC-2006147190

PATIENT
  Sex: Male

DRUGS (3)
  1. LYRICA [Suspect]
     Indication: PAIN
     Dosage: DAILY DOSE:450MG
     Route: 048
  2. AMINEURIN [Concomitant]
  3. NOVAMINSULFON ^LICHTENSTEIN^ [Concomitant]
     Dosage: FREQ:20-30 DROPS DAILY

REACTIONS (2)
  - CARDIAC FAILURE [None]
  - DYSPNOEA [None]
